FAERS Safety Report 9676937 (Version 1)
Quarter: 2013Q4

REPORT INFORMATION
  Report Type: Spontaneous
  Country: US (occurrence: US)
  Receive Date: 20131108
  Receipt Date: 20131108
  Transmission Date: 20140711
  Serious: No
  Sender: FDA-Public Use
  Company Number: US-SA-2013SA103306

PATIENT
  Sex: Female

DRUGS (1)
  1. ALLEGRA [Suspect]
     Dosage: TODAY SHE TOOK CLOSE TO 2 TEASPOONFUL (60MG)
     Route: 048

REACTIONS (4)
  - Feeling abnormal [Unknown]
  - Therapeutic response increased [Unknown]
  - Nausea [Unknown]
  - Dizziness [Unknown]
